FAERS Safety Report 15477102 (Version 3)
Quarter: 2019Q4

REPORT INFORMATION
  Report Type: Spontaneous
  Country: US (occurrence: US)
  Receive Date: 20181009
  Receipt Date: 20191209
  Transmission Date: 20200122
  Serious: No
  Sender: FDA-Public Use
  Company Number: US-PFIZER INC-2018381017

PATIENT
  Age: 21 Year
  Sex: Female
  Weight: 82 kg

DRUGS (2)
  1. XELJANZ XR [Suspect]
     Active Substance: TOFACITINIB CITRATE
     Indication: PSORIATIC ARTHROPATHY
     Dosage: 11 MG, DAILY
     Route: 048
     Dates: start: 201807
  2. XELJANZ XR [Suspect]
     Active Substance: TOFACITINIB CITRATE
     Dosage: 11 MG, 1X/DAY
     Route: 048
     Dates: start: 20180801

REACTIONS (5)
  - Gastrointestinal disorder [Unknown]
  - Acne [Unknown]
  - Vertigo [Unknown]
  - Weight increased [Unknown]
  - Nausea [Unknown]

NARRATIVE: CASE EVENT DATE: 2018
